FAERS Safety Report 17931137 (Version 1)
Quarter: 2020Q2

REPORT INFORMATION
  Report Type: Spontaneous
  Country: US (occurrence: US)
  Receive Date: 20200623
  Receipt Date: 20200623
  Transmission Date: 20200714
  Serious: No
  Sender: FDA-Public Use
  Company Number: US-GILEAD-2020-0474137

PATIENT
  Sex: Female

DRUGS (16)
  1. EPCLUSA [Suspect]
     Active Substance: SOFOSBUVIR\VELPATASVIR
     Indication: CHRONIC HEPATITIS C
     Dosage: 1 DOSAGE FORM, QD
     Route: 048
     Dates: end: 20200609
  2. CLONAZEPAM. [Concomitant]
     Active Substance: CLONAZEPAM
  3. BIOTIN [Concomitant]
     Active Substance: BIOTIN
  4. NIACIN. [Concomitant]
     Active Substance: NIACIN
  5. VISINE [TETRYZOLINE HYDROCHLORIDE] [Concomitant]
  6. FOLATE [Concomitant]
     Active Substance: FOLATE SODIUM
  7. NAPROXEN. [Concomitant]
     Active Substance: NAPROXEN
  8. ALENDRONATE SODIUM. [Concomitant]
     Active Substance: ALENDRONATE SODIUM
  9. VITAMIN C [Concomitant]
     Active Substance: ASCORBIC ACID
  10. ACYCLOVIR [ACICLOVIR] [Concomitant]
     Active Substance: ACYCLOVIR
  11. VITAMIN D [COLECALCIFEROL] [Concomitant]
     Active Substance: CHOLECALCIFEROL
  12. VITAMIN B12 [COBAMAMIDE] [Concomitant]
  13. VITAMIN E [VITAMIN E NOS] [Concomitant]
  14. ZINC. [Concomitant]
     Active Substance: ZINC
  15. TIZANIDINE HYDROCHLORIDE. [Concomitant]
     Active Substance: TIZANIDINE HYDROCHLORIDE
  16. VITAMIN A [COLECALCIFEROL;RETINOL] [Concomitant]
     Active Substance: CHOLECALCIFEROL\RETINOL

REACTIONS (2)
  - Dizziness [Unknown]
  - Vertigo [Unknown]
